FAERS Safety Report 21730381 (Version 2)
Quarter: 2023Q2

REPORT INFORMATION
  Report Type: Report from Study
  Country: DE (occurrence: DE)
  Receive Date: 20221214
  Receipt Date: 20230626
  Transmission Date: 20230721
  Serious: Yes (Hospitalization)
  Sender: FDA-Public Use
  Company Number: DE-ABBVIE-4235501

PATIENT
  Age: 59 Year
  Weight: 100 kg

DRUGS (2)
  1. SKYRIZI [Suspect]
     Active Substance: RISANKIZUMAB-RZAA
     Indication: Psoriasis
     Route: 058
     Dates: start: 20220524
  2. Candesartan/Amlodipin [Concomitant]
     Indication: Product used for unknown indication
     Dosage: 16 MG/10 MG
     Dates: start: 20210615

REACTIONS (2)
  - Cholelithiasis [Recovered/Resolved]
  - Diverticulitis [Recovered/Resolved]

NARRATIVE: CASE EVENT DATE: 20221108
